FAERS Safety Report 9934412 (Version 1)
Quarter: 2014Q1

REPORT INFORMATION
  Report Type: Report from Study
  Country: US (occurrence: US)
  Receive Date: 20140228
  Receipt Date: 20140228
  Transmission Date: 20141002
  Serious: No
  Sender: FDA-Public Use
  Company Number: US-ABBVIE-14P-163-1197339-00

PATIENT
  Sex: Male
  Weight: 102.15 kg

DRUGS (4)
  1. ANDROGEL [Suspect]
     Indication: BLOOD TESTOSTERONE DECREASED
     Route: 061
     Dates: start: 20120901, end: 201212
  2. ANDROGEL [Suspect]
     Indication: BLOOD TESTOSTERONE DECREASED
     Route: 061
     Dates: start: 201308
  3. AMLODIPINE [Concomitant]
     Indication: HYPERTENSION
  4. CARBIDOPA [Concomitant]
     Indication: PARKINSON^S DISEASE

REACTIONS (1)
  - Blood testosterone decreased [Unknown]
